FAERS Safety Report 10274486 (Version 3)
Quarter: 2015Q3

REPORT INFORMATION
  Report Type: Spontaneous
  Country: BR (occurrence: BR)
  Receive Date: 20140702
  Receipt Date: 20150828
  Transmission Date: 20151125
  Serious: Yes (Hospitalization, Other)
  Sender: FDA-Public Use
  Company Number: BR-ABBVIE-14P-020-1243029-00

PATIENT
  Age: 11 Year
  Sex: Male
  Weight: 42 kg

DRUGS (6)
  1. DEPAKENE [Suspect]
     Active Substance: VALPROIC ACID
     Indication: PRODUCT USED FOR UNKNOWN INDICATION
     Route: 065
     Dates: start: 201310, end: 201310
  2. SONEBON [Concomitant]
     Indication: SEIZURE
     Route: 048
  3. DEPAKENE [Suspect]
     Active Substance: VALPROIC ACID
     Indication: SEIZURE
     Dosage: DAILY DOSE: 1500 MG; PRESCRIPTION WAS FROM OCT 2013, BUT BEGAN TAKING IT IN NOV 2013.
     Route: 048
     Dates: start: 201311
  4. CLOBAZAM [Concomitant]
     Active Substance: CLOBAZAM
     Indication: SEIZURE
     Route: 048
  5. TRILEPTAL [Concomitant]
     Active Substance: OXCARBAZEPINE
     Indication: SEIZURE
     Route: 048
  6. DEPAKENE [Suspect]
     Active Substance: VALPROIC ACID
     Indication: SEIZURE
     Route: 048
     Dates: start: 201310, end: 201310

REACTIONS (4)
  - Seizure [Recovering/Resolving]
  - Seizure [Not Recovered/Not Resolved]
  - Pneumonia [Recovered/Resolved]
  - Hypersensitivity [Unknown]

NARRATIVE: CASE EVENT DATE: 201310
